FAERS Safety Report 7599082-8 (Version None)
Quarter: 2011Q3

REPORT INFORMATION
  Report Type: 
  Country: None (occurrence: None)
  Receive Date: 20110711
  Receipt Date: 20110629
  Transmission Date: 20111222
  Serious: Yes (Other)
  Sender: FDA-Public Use
  Company Number: US-BAYER-2011-056595

PATIENT
  Sex: Male

DRUGS (1)
  1. AVELOX [Suspect]
     Dosage: 400 MG, ONCE
     Route: 048
     Dates: start: 20110601, end: 20110601

REACTIONS (4)
  - DIZZINESS [None]
  - OEDEMA PERIPHERAL [None]
  - PRURITUS [None]
  - HYPERSENSITIVITY [None]
